FAERS Safety Report 7816054-6 (Version None)
Quarter: 2011Q4

REPORT INFORMATION
  Report Type: 
  Country: None (occurrence: None)
  Receive Date: 20111015
  Receipt Date: 20111006
  Transmission Date: 20120403
  Serious: Yes (Hospitalization)
  Sender: FDA-Public Use
  Company Number: BR-ASTRAZENECA-2011SE60294

PATIENT
  Age: 70 Year
  Sex: Male
  Weight: 86 kg

DRUGS (1)
  1. SYMBICORT [Suspect]
     Dosage: 320/9 MCG TWO TIMES A DAY
     Route: 055
     Dates: start: 20101001, end: 20101101

REACTIONS (1)
  - SALIVARY GLAND MASS [None]
